FAERS Safety Report 6567390-5 (Version None)
Quarter: 2010Q1

REPORT INFORMATION
  Report Type: 
  Country: None (occurrence: None)
  Receive Date: 20100202
  Receipt Date: 20100128
  Transmission Date: 20100710
  Serious: Yes (Life-Threatening, Hospitalization)
  Sender: FDA-Public Use
  Company Number: PHHY2010FR04823

PATIENT
  Sex: Male

DRUGS (3)
  1. RASILEZ [Suspect]
     Indication: HYPERTENSION
     Dosage: 150 MG
     Dates: start: 20091009
  2. RASILEZ [Suspect]
     Dosage: 300 MG
     Dates: start: 20091126
  3. STATIN [Concomitant]
     Dosage: UNK

REACTIONS (6)
  - CORONARY ARTERY DILATATION [None]
  - CORONARY ARTERY OCCLUSION [None]
  - CORONARY ARTERY STENOSIS [None]
  - MYOCARDIAL INFARCTION [None]
  - STENT PLACEMENT [None]
  - TROPONIN INCREASED [None]
